FAERS Safety Report 11633479 (Version 1)
Quarter: 2015Q4

REPORT INFORMATION
  Report Type: Spontaneous
  Country: JP (occurrence: JP)
  Receive Date: 20151015
  Receipt Date: 20151015
  Transmission Date: 20160304
  Serious: Yes (Other)
  Sender: FDA-Public Use
  Company Number: JP-ASTRAZENECA-2015SE99415

PATIENT
  Sex: Female

DRUGS (6)
  1. BENZALIN [Suspect]
     Active Substance: NITRAZEPAM
     Indication: PRODUCT USED FOR UNKNOWN INDICATION
     Dosage: EXTRA DOSE (DOSE AND FREQUENCY UNKNOWN)
     Route: 048
     Dates: start: 201505, end: 201505
  2. BENZALIN [Suspect]
     Active Substance: NITRAZEPAM
     Indication: PRODUCT USED FOR UNKNOWN INDICATION
     Route: 048
  3. SEROQUEL [Suspect]
     Active Substance: QUETIAPINE FUMARATE
     Dosage: 200 MG / 25 MG (DOSE AND FREQUENCY UNKNOWN)
     Route: 048
  4. SEROQUEL [Suspect]
     Active Substance: QUETIAPINE FUMARATE
     Dosage: 200 MG / 25 MG EXTRA DOSE (DOSE AND FREQUENCY UNKNOWN)
     Route: 048
     Dates: start: 201505, end: 201505
  5. VEGETAMIN A [Suspect]
     Active Substance: CHLORPROMAZINE HYDROCHLORIDE\PHENOBARBITAL\PROMETHAZINE
     Indication: PRODUCT USED FOR UNKNOWN INDICATION
     Route: 048
  6. VEGETAMIN A [Suspect]
     Active Substance: CHLORPROMAZINE HYDROCHLORIDE\PHENOBARBITAL\PROMETHAZINE
     Indication: PRODUCT USED FOR UNKNOWN INDICATION
     Dosage: EXTRA DOSE (DOSE AND FREQUENCY UNKNOWN)
     Route: 048
     Dates: start: 201505, end: 201505

REACTIONS (2)
  - Dizziness [Recovering/Resolving]
  - Extra dose administered [Unknown]

NARRATIVE: CASE EVENT DATE: 201505
